FAERS Safety Report 4664735-8 (Version None)
Quarter: 2005Q2

REPORT INFORMATION
  Report Type: 
  Country: None (occurrence: None)
  Receive Date: 20050517
  Receipt Date: 20050517
  Transmission Date: 20051028
  Serious: Yes (Other)
  Sender: FDA-Public Use
  Company Number: None

PATIENT
  Age: 54 Year
  Sex: Female
  Weight: 73.4827 kg

DRUGS (3)
  1. TRAMADOL HCL [Suspect]
     Indication: FIBROMYALGIA
     Dosage: 50MG PO Q 6 HRS PRN
     Route: 048
     Dates: start: 20000606
  2. TRAMADOL HCL [Suspect]
     Indication: OSTEOARTHRITIS
     Dosage: 50MG PO Q 6 HRS PRN
     Route: 048
     Dates: start: 20000606
  3. ULTRAM [Suspect]

REACTIONS (5)
  - ABDOMINAL PAIN [None]
  - DRUG EFFECT DECREASED [None]
  - GASTROINTESTINAL DISORDER [None]
  - NAUSEA [None]
  - THERAPEUTIC RESPONSE UNEXPECTED WITH DRUG SUBSTITUTION [None]
